FAERS Safety Report 23832875 (Version 3)
Quarter: 2024Q3

REPORT INFORMATION
  Report Type: Report from Study
  Country: CA (occurrence: CA)
  Receive Date: 20240508
  Receipt Date: 20240920
  Transmission Date: 20241017
  Serious: Yes (Other)
  Sender: AKCEA THERAPEUTICS
  Company Number: CA-AKCEA THERAPEUTICS, INC.-2024IS004223

PATIENT

DRUGS (26)
  1. TEGSEDI [Suspect]
     Active Substance: INOTERSEN SODIUM
     Indication: Hereditary neuropathic amyloidosis
     Dosage: 284 MILLIGRAM, QOW
     Route: 058
  2. TEGSEDI [Suspect]
     Active Substance: INOTERSEN SODIUM
     Dosage: 284 MG, QW
     Route: 058
     Dates: start: 20220310
  3. TEGSEDI [Suspect]
     Active Substance: INOTERSEN SODIUM
     Dosage: 284 MILLIGRAM, QW (1 EVERY 1 WEEK)
     Route: 058
  4. TEGSEDI [Suspect]
     Active Substance: INOTERSEN SODIUM
     Dosage: 284 MILLIGRAM, QOW
     Route: 058
  5. TEGSEDI [Suspect]
     Active Substance: INOTERSEN SODIUM
     Dosage: 284 MILLIGRAM, QW
     Route: 058
     Dates: start: 20210305
  6. TYLENOL ARTHRITIS PAIN [Concomitant]
     Active Substance: ACETAMINOPHEN
     Indication: Product used for unknown indication
     Dosage: UNK, BID
     Route: 048
     Dates: start: 2019
  7. CHLORTHALIDONE [Concomitant]
     Active Substance: CHLORTHALIDONE
     Indication: Hypertension
     Dosage: 1/4 PILL
     Route: 065
  8. CHLORTHALIDONE [Concomitant]
     Active Substance: CHLORTHALIDONE
     Indication: Swelling
     Dosage: 12.5 MILLIGRAM, QD
     Route: 065
  9. CHLORTHALIDONE [Concomitant]
     Active Substance: CHLORTHALIDONE
     Dosage: 25 MILLIGRAM, QD
     Route: 065
  10. CHLORTHALIDONE [Concomitant]
     Active Substance: CHLORTHALIDONE
     Dosage: 50 MILLIGRAM, QD
     Route: 048
  11. CHLORTHALIDONE [Concomitant]
     Active Substance: CHLORTHALIDONE
     Dosage: UNK, QD
     Route: 048
     Dates: start: 2019
  12. NEXIUM [Concomitant]
     Active Substance: ESOMEPRAZOLE MAGNESIUM
     Indication: Product used for unknown indication
     Dosage: 40 MILLIGRAM, QD
     Route: 065
  13. EURO-FER [Concomitant]
     Indication: Product used for unknown indication
     Dosage: 300 MILLIGRAM, QD (1 DOSAGE FORM)
     Route: 065
  14. ASPIRIN [Concomitant]
     Active Substance: ASPIRIN
     Indication: Product used for unknown indication
     Dosage: 81 MILLIGRAM, QD
     Route: 065
  15. CANDESARTAN [Concomitant]
     Active Substance: CANDESARTAN
     Indication: Product used for unknown indication
     Dosage: 32 MILLIGRAM, QHS (BED TIME)
     Route: 065
  16. CADUET [Concomitant]
     Active Substance: AMLODIPINE BESYLATE\ATORVASTATIN CALCIUM
     Indication: Product used for unknown indication
     Dosage: 1 DOSAGE FORM, QHS (40/10 MG 1 TABLET NIGHTLY)
     Route: 065
  17. EZETIMIBE [Concomitant]
     Active Substance: EZETIMIBE
     Indication: Product used for unknown indication
     Dosage: 10 MILLIGRAM, QD (1 DOSAGE FOM)
     Route: 065
  18. EZETIMIBE [Concomitant]
     Active Substance: EZETIMIBE
     Indication: Cough
     Dosage: 10 MILLIGRAM, QD
     Route: 065
  19. FAMOTIDINE [Concomitant]
     Active Substance: FAMOTIDINE
     Indication: Product used for unknown indication
     Dosage: 40 MILLIGRAM
     Route: 065
  20. ESOMEPRAZOLE [Concomitant]
     Active Substance: ESOMEPRAZOLE
     Indication: Product used for unknown indication
     Dosage: UNK
     Route: 065
  21. FERROUS FUMARATE [Concomitant]
     Active Substance: FERROUS FUMARATE
     Indication: Product used for unknown indication
     Dosage: UNK
     Route: 065
  22. NAPROXEN [Concomitant]
     Active Substance: NAPROXEN
     Indication: Product used for unknown indication
     Dosage: UNK
     Route: 065
  23. MELOXICAM [Concomitant]
     Active Substance: MELOXICAM
     Indication: Pain
     Dosage: 7.5 MILLIGRAM, BID (1 DOSAGR FORM)
     Route: 048
  24. MELOXICAM [Concomitant]
     Active Substance: MELOXICAM
     Dosage: UNK, BID
     Route: 048
     Dates: start: 2019
  25. TYLENOL [Concomitant]
     Active Substance: ACETAMINOPHEN
     Indication: Pain
     Dosage: UNK
     Route: 065
  26. AMITRIPTYLINE [Concomitant]
     Active Substance: AMITRIPTYLINE
     Indication: Pain
     Dosage: 10 MILLIGRAM
     Route: 065
     Dates: start: 202209

REACTIONS (36)
  - Back pain [Not Recovered/Not Resolved]
  - Renal impairment [Not Recovered/Not Resolved]
  - Red cell distribution width increased [Not Recovered/Not Resolved]
  - Blood creatinine increased [Not Recovered/Not Resolved]
  - Creatinine urine decreased [Recovered/Resolved]
  - Anisocytosis [Not Recovered/Not Resolved]
  - Red blood cell target cells present [Not Recovered/Not Resolved]
  - Hypochromasia [Not Recovered/Not Resolved]
  - Microcytosis [Not Recovered/Not Resolved]
  - Neuropathy peripheral [Not Recovered/Not Resolved]
  - Haematocrit decreased [Not Recovered/Not Resolved]
  - Basophil count increased [Recovered/Resolved]
  - Red blood cell count decreased [Recovered/Resolved]
  - Glomerular filtration rate decreased [Not Recovered/Not Resolved]
  - Protein urine present [Not Recovered/Not Resolved]
  - Haemoglobin decreased [Not Recovered/Not Resolved]
  - Elliptocytosis [Not Recovered/Not Resolved]
  - Urine albumin/creatinine ratio increased [Not Recovered/Not Resolved]
  - Red blood cell analysis abnormal [Not Recovered/Not Resolved]
  - Red blood cell burr cells present [Not Recovered/Not Resolved]
  - Vitamin A decreased [Unknown]
  - Dyspnoea [Recovered/Resolved]
  - Hypoaesthesia [Unknown]
  - Decreased activity [Unknown]
  - Neurological symptom [Unknown]
  - Polychromasia [Not Recovered/Not Resolved]
  - Weight increased [Unknown]
  - Blood uric acid increased [Unknown]
  - Swelling [Unknown]
  - Urine abnormality [Unknown]
  - Urine protein/creatinine ratio decreased [Recovered/Resolved]
  - Ventricular remodelling [Unknown]
  - Musculoskeletal discomfort [Unknown]
  - Diastolic dysfunction [Unknown]
  - Constipation [Not Recovered/Not Resolved]
  - Fatigue [Not Recovered/Not Resolved]

NARRATIVE: CASE EVENT DATE: 20210422
